FAERS Safety Report 7507358-5 (Version None)
Quarter: 2011Q2

REPORT INFORMATION
  Report Type: 
  Country: None (occurrence: None)
  Receive Date: 20110526
  Receipt Date: 20110523
  Transmission Date: 20111010
  Serious: Yes (Hospitalization)
  Sender: FDA-Public Use
  Company Number: DE-ABBOTT-11P-062-0727813-00

PATIENT
  Sex: Male

DRUGS (3)
  1. HUMIRA [Suspect]
     Route: 058
     Dates: start: 20110501
  2. HUMIRA [Suspect]
     Indication: CROHN'S DISEASE
     Route: 058
     Dates: start: 20060506, end: 20110301
  3. QUANTALAN [Concomitant]
     Indication: PRODUCT USED FOR UNKNOWN INDICATION

REACTIONS (2)
  - GASTROINTESTINAL STENOSIS [None]
  - ABSCESS INTESTINAL [None]
